FAERS Safety Report 13483976 (Version 1)
Quarter: 2017Q2

REPORT INFORMATION
  Report Type: Report from Study
  Country: CN (occurrence: CN)
  Receive Date: 20170425
  Receipt Date: 20170425
  Transmission Date: 20170830
  Serious: Yes (Death, Other)
  Sender: FDA-Public Use
  Company Number: CN-SUN PHARMACEUTICAL INDUSTRIES LTD-2017R1-138892

PATIENT
  Age: 10 Month

DRUGS (2)
  1. VINCRISTINE [Suspect]
     Active Substance: VINCRISTINE
     Indication: HEPATOBLASTOMA RECURRENT
     Dosage: 1.5 MG/M2, DAILY
     Route: 042
  2. IRINOTECAN [Suspect]
     Active Substance: IRINOTECAN
     Indication: HEPATOBLASTOMA RECURRENT
     Dosage: 50 MG/M2, DAILY
     Route: 042

REACTIONS (5)
  - Disease progression [Fatal]
  - Vomiting [Unknown]
  - Bone marrow failure [Unknown]
  - Diarrhoea [Unknown]
  - Neutropenia [Unknown]
